FAERS Safety Report 9890876 (Version 1)
Quarter: 2014Q1

REPORT INFORMATION
  Report Type: Spontaneous
  Country: US (occurrence: US)
  Receive Date: 20140212
  Receipt Date: 20140212
  Transmission Date: 20141002
  Serious: No
  Sender: FDA-Public Use
  Company Number: US-BAYER-2014-017727

PATIENT
  Age: 75 Year
  Sex: Male
  Weight: 81.63 kg

DRUGS (3)
  1. ALEVE CAPLET [Suspect]
     Indication: HEADACHE
     Dosage: 2 DF, PRN
     Route: 048
  2. SILODOSIN [Concomitant]
  3. LIPITOR [Concomitant]

REACTIONS (3)
  - Nocturia [Recovered/Resolved]
  - Expired drug administered [None]
  - Therapeutic response unexpected [Recovered/Resolved]
